FAERS Safety Report 8027684-3 (Version None)
Quarter: 2012Q1

REPORT INFORMATION
  Report Type: 
  Country: None (occurrence: None)
  Receive Date: 20120106
  Receipt Date: 20120103
  Transmission Date: 20120608
  Serious: Yes (Hospitalization, Other)
  Sender: FDA-Public Use
  Company Number: US-PFIZER INC-2010007856

PATIENT
  Age: 53 Year
  Sex: Female

DRUGS (3)
  1. ALPRAZOLAM [Suspect]
  2. CITALOPRAM [Suspect]
  3. VERAPAMIL HCL [Suspect]

REACTIONS (6)
  - MENTAL STATUS CHANGES [None]
  - TORSADE DE POINTES [None]
  - BRADYCARDIA [None]
  - OVERDOSE [None]
  - ELECTROCARDIOGRAM QT PROLONGED [None]
  - CONVULSION [None]
